FAERS Safety Report 7656830-6 (Version None)
Quarter: 2011Q3

REPORT INFORMATION
  Report Type: 
  Country: None (occurrence: None)
  Receive Date: 20110802
  Receipt Date: 20110719
  Transmission Date: 20111222
  Serious: Yes (Life-Threatening, Hospitalization, Other)
  Sender: FDA-Public Use
  Company Number: GER/GER/11/0018907

PATIENT
  Age: 49 Year
  Sex: Female
  Weight: 81 kg

DRUGS (4)
  1. IBUPROFEN [Suspect]
     Indication: PRODUCT USED FOR UNKNOWN INDICATION
     Dosage: 400 MG, 1 IN 1 D, ORAL, 400 MG, 8X1 DAILY IF REQUIRED, ORAL
     Route: 048
     Dates: start: 20110104, end: 20110318
  2. IBUPROFEN [Suspect]
     Indication: PRODUCT USED FOR UNKNOWN INDICATION
     Dosage: 400 MG, 1 IN 1 D, ORAL, 400 MG, 8X1 DAILY IF REQUIRED, ORAL
     Route: 048
     Dates: start: 20110314, end: 20110318
  3. SALOFALK GRANUSTIX 1000MG (AMINOSALICYLIC ACID) [Suspect]
     Indication: PRODUCT USED FOR UNKNOWN INDICATION
     Dosage: 2000 MG, 2 IN 1 D, ORAL, 2000 MG, 1 IN 1 D, ORAL
     Route: 048
     Dates: start: 20110302, end: 20110322
  4. SALOFALK GRANUSTIX 1000MG (AMINOSALICYLIC ACID) [Suspect]
     Indication: PRODUCT USED FOR UNKNOWN INDICATION
     Dosage: 2000 MG, 2 IN 1 D, ORAL, 2000 MG, 1 IN 1 D, ORAL
     Route: 048
     Dates: start: 20110323, end: 20110323

REACTIONS (4)
  - CHOLELITHIASIS [None]
  - COLITIS ULCERATIVE [None]
  - HELICOBACTER GASTRITIS [None]
  - PANCREATITIS ACUTE [None]
